FAERS Safety Report 10268890 (Version 2)
Quarter: 2014Q2

REPORT INFORMATION
  Report Type: Spontaneous
  Country: KR (occurrence: KR)
  Receive Date: 20140630
  Receipt Date: 20140630
  Transmission Date: 20141212
  Serious: Yes (Other)
  Sender: FDA-Public Use
  Company Number: KR-NAPPMUNDI-GBR-2013-0016497

PATIENT
  Age: 70 Year
  Sex: Female

DRUGS (1)
  1. NORSPAN PATCH 10 UG/H [Suspect]
     Indication: PRODUCT USED FOR UNKNOWN INDICATION
     Dosage: 20 MCG, Q1H
     Route: 062
     Dates: start: 20131116, end: 20131117

REACTIONS (14)
  - Overdose [Recovered/Resolved with Sequelae]
  - Wrong technique in drug usage process [Unknown]
  - Fall [Unknown]
  - Nausea [Recovered/Resolved with Sequelae]
  - Vomiting [Recovered/Resolved with Sequelae]
  - Dizziness [Recovered/Resolved with Sequelae]
  - Tremor [Recovered/Resolved with Sequelae]
  - Tinnitus [Unknown]
  - Tinnitus [Unknown]
  - Diarrhoea [Unknown]
  - Urinary incontinence [Unknown]
  - Muscular weakness [Unknown]
  - Muscular weakness [Unknown]
  - Dizziness [Unknown]
